FAERS Safety Report 5262665-4 (Version None)
Quarter: 2007Q1

REPORT INFORMATION
  Report Type: 
  Country: None (occurrence: None)
  Receive Date: 20061218
  Receipt Date: 20060215
  Transmission Date: 20070707
  Serious: Yes (Other)
  Sender: FDA-Public Use
  Company Number: 2006025520

PATIENT
  Age: 31 Year
  Sex: Male
  Weight: 72.5755 kg

DRUGS (2)
  1. ARTHROTEC [Suspect]
     Indication: BACK PAIN
     Dosage: 150 MG (75 MG, 2 IN 1 D)
     Dates: start: 20060214
  2. ARTHROTEC [Suspect]
     Indication: MUSCULOSKELETAL PAIN
     Dosage: 150 MG (75 MG, 2 IN 1 D)
     Dates: start: 20060214

REACTIONS (1)
  - DYSURIA [None]
